FAERS Safety Report 15649363 (Version 1)
Quarter: 2018Q4

REPORT INFORMATION
  Report Type: Report from Study
  Country: US (occurrence: US)
  Receive Date: 20181122
  Receipt Date: 20181122
  Transmission Date: 20190205
  Serious: No
  Sender: FDA-Public Use
  Company Number: US-ACADIA PHARMACEUTICALS INC.-ACA-2018-010377

PATIENT
  Age: 78 Year
  Sex: Male

DRUGS (3)
  1. NUPLAZID [Suspect]
     Active Substance: PIMAVANSERIN TARTRATE
     Indication: PARKINSON^S DISEASE PSYCHOSIS
  2. NUPLAZID [Suspect]
     Active Substance: PIMAVANSERIN TARTRATE
     Indication: DELUSION
     Dosage: 34 MG, QD
     Route: 065
     Dates: start: 20180924
  3. NUPLAZID [Suspect]
     Active Substance: PIMAVANSERIN TARTRATE
     Indication: HALLUCINATION

REACTIONS (4)
  - Lethargy [Recovered/Resolved]
  - Paraesthesia oral [Unknown]
  - Anxiety [Not Recovered/Not Resolved]
  - Dry mouth [Unknown]

NARRATIVE: CASE EVENT DATE: 20180925
